FAERS Safety Report 4866743-0 (Version None)
Quarter: 2005Q4

REPORT INFORMATION
  Report Type: 
  Country: None (occurrence: None)
  Receive Date: 20051221
  Receipt Date: 20051213
  Transmission Date: 20060501
  Serious: Yes (Other)
  Sender: FDA-Public Use
  Company Number: S05-CAN-05671-01

PATIENT
  Age: 93 Year
  Sex: Female

DRUGS (17)
  1. MEMANTINE HCL [Suspect]
     Indication: DEMENTIA
     Dosage: 5 MG BID PO
     Route: 048
     Dates: start: 20050701, end: 20050919
  2. ACETAMINOPHEN [Concomitant]
  3. RABEPRAZOLE SODIUM [Concomitant]
  4. EXELON [Concomitant]
  5. ASPIRIN [Concomitant]
  6. ACETAMINOPHEN [Concomitant]
  7. DOCUSATE SODIUM [Concomitant]
  8. PSYLLIUM [Concomitant]
  9. TIAZAC [Concomitant]
  10. TRAZODONE [Concomitant]
  11. ACEBUTOLOL [Concomitant]
  12. COLACE (DOCUSATE SODIUM) [Concomitant]
  13. FLORADIX [Concomitant]
  14. SERAX [Concomitant]
  15. ASCORBIC ACID [Concomitant]
  16. VITAMIN B-12 [Concomitant]
  17. VITAMIN E (VITAMIN E /001105/) [Concomitant]

REACTIONS (5)
  - ASTHENIA [None]
  - CEREBROVASCULAR ACCIDENT [None]
  - DRUG INTOLERANCE [None]
  - DYSPHAGIA [None]
  - HYPOTENSION [None]
